FAERS Safety Report 8320257-4 (Version None)
Quarter: 2012Q2

REPORT INFORMATION
  Report Type: 
  Country: None (occurrence: None)
  Receive Date: 20120426
  Receipt Date: 20120426
  Transmission Date: 20120825
  Serious: Yes (Hospitalization)
  Sender: FDA-Public Use
  Company Number: None

PATIENT
  Sex: Female
  Weight: 86.8 kg

DRUGS (15)
  1. ONDANSETRON HCL [Concomitant]
  2. PROCHLOPERAZINE [Concomitant]
  3. TAXOL [Suspect]
     Dosage: 120 MG
  4. LOMOTIL [Concomitant]
  5. LORAZEPAM [Concomitant]
  6. PREVACID [Concomitant]
  7. PROAIR HFA [Concomitant]
  8. BENAZEPRIL HYDROCHLORIDE [Concomitant]
  9. GABAPENTIN [Concomitant]
  10. HYDROCHLOROTHIAZIDE [Concomitant]
  11. KLOR-COM M20 [Concomitant]
  12. ZOLPIDEM [Concomitant]
  13. MULTI-VITAMIN [Concomitant]
  14. TYLENOL (CAPLET) [Concomitant]
  15. NASONEX [Concomitant]

REACTIONS (1)
  - HYPOKALAEMIA [None]
